FAERS Safety Report 19223973 (Version 1)
Quarter: 2021Q2

REPORT INFORMATION
  Report Type: Spontaneous
  Country: US (occurrence: US)
  Receive Date: 20210505
  Receipt Date: 20210505
  Transmission Date: 20210717
  Serious: No
  Sender: FDA-Public Use
  Company Number: US-ROCHE-2561765

PATIENT
  Sex: Male

DRUGS (5)
  1. ESBRIET [Suspect]
     Active Substance: PIRFENIDONE
     Indication: INTERSTITIAL LUNG DISEASE
     Dosage: 1 TABLET 3 TIMES A DAILY FOR FIRST WEEK, THEN 2 TABLET 3 TIMES A DAILY FOR SECOND WEEKS AND THEN 3 T
     Route: 048
     Dates: start: 20200207
  2. ESBRIET [Suspect]
     Active Substance: PIRFENIDONE
     Dosage: ONE TABLET THREE TIMES DAILY
     Route: 048
     Dates: start: 20200206, end: 20200624
  3. ESBRIET [Suspect]
     Active Substance: PIRFENIDONE
     Dosage: TAKE 1 TABLET BY MOUTH THREE TIMES DAILY WITH MEALS
     Route: 048
  4. ESBRIET [Suspect]
     Active Substance: PIRFENIDONE
     Dosage: ONE TABLET THREE TIMES DAILY
     Route: 048
  5. ESBRIET [Suspect]
     Active Substance: PIRFENIDONE
     Dosage: ONE TABLET THREE TIMES DAILY
     Route: 048

REACTIONS (5)
  - Insomnia [Unknown]
  - Rash [Recovered/Resolved]
  - Blister [Unknown]
  - Abdominal pain upper [Recovered/Resolved]
  - Nausea [Unknown]
